FAERS Safety Report 6295894-1 (Version None)
Quarter: 2009Q3

REPORT INFORMATION
  Report Type: 
  Country: None (occurrence: None)
  Receive Date: 20090804
  Receipt Date: 20090803
  Transmission Date: 20100115
  Serious: Yes (Death)
  Sender: FDA-Public Use
  Company Number: PHHY2009JP31278

PATIENT
  Age: 27 Year
  Sex: Female

DRUGS (3)
  1. CYCLOSPORINE [Suspect]
     Indication: AUTOIMMUNE HEPATITIS
  2. PREDNISOLONE [Concomitant]
     Indication: AUTOIMMUNE HEPATITIS
     Dosage: 30 MG/DAY
  3. AZATHIOPRINE [Concomitant]
     Indication: AUTOIMMUNE HEPATITIS
     Dosage: 50 MG/DAY

REACTIONS (4)
  - ACUTE RESPIRATORY FAILURE [None]
  - DEPRESSED LEVEL OF CONSCIOUSNESS [None]
  - DRUG RESISTANCE [None]
  - PNEUMOCYSTIS JIROVECI INFECTION [None]
